FAERS Safety Report 11322281 (Version 3)
Quarter: 2016Q1

REPORT INFORMATION
  Report Type: Spontaneous
  Country: CA (occurrence: CA)
  Receive Date: 20150730
  Receipt Date: 20160121
  Transmission Date: 20160525
  Serious: Yes (Other)
  Sender: FDA-Public Use
  Company Number: CA-ROCHE-1614698

PATIENT
  Age: 45 Year
  Sex: Female

DRUGS (3)
  1. HERCEPTIN [Suspect]
     Active Substance: TRASTUZUMAB
     Indication: BREAST CANCER METASTATIC
     Dosage: THERAPY DURATION: 9 MONTHS
     Route: 042
  2. TAXOTERE [Suspect]
     Active Substance: DOCETAXEL
     Indication: BREAST CANCER METASTATIC
     Route: 042
  3. PERJETA [Suspect]
     Active Substance: PERTUZUMAB
     Indication: BREAST CANCER METASTATIC
     Dosage: INTRAVENOUS SOLUTION (CONCENTRATE SOLUTION)
     Route: 042

REACTIONS (6)
  - Left ventricular dysfunction [Not Recovered/Not Resolved]
  - Metastases to lung [Not Recovered/Not Resolved]
  - Pyrexia [Not Recovered/Not Resolved]
  - Diarrhoea [Not Recovered/Not Resolved]
  - Abdominal pain upper [Not Recovered/Not Resolved]
  - Heart rate increased [Not Recovered/Not Resolved]
